FAERS Safety Report 5139365-4 (Version None)
Quarter: 2006Q4

REPORT INFORMATION
  Report Type: 
  Country: None (occurrence: None)
  Receive Date: 20061024
  Receipt Date: 20061011
  Transmission Date: 20070319
  Serious: Yes (Death)
  Sender: FDA-Public Use
  Company Number: 2006RL000343

PATIENT
  Age: 44 Year
  Sex: Male

DRUGS (2)
  1. RYTHMOL [Suspect]
     Indication: ATRIAL FIBRILLATION
     Dosage: 325; PO
     Route: 048
     Dates: start: 20050524, end: 20060228
  2. TEQUIN [Suspect]
     Indication: SINUSITIS

REACTIONS (3)
  - DRUG INTERACTION [None]
  - HEPATIC FAILURE [None]
  - SINUSITIS [None]
